FAERS Safety Report 25914064 (Version 1)
Quarter: 2025Q4

REPORT INFORMATION
  Report Type: Spontaneous
  Country: CN (occurrence: CN)
  Receive Date: 20251013
  Receipt Date: 20251013
  Transmission Date: 20260117
  Serious: Yes (Hospitalization, Other)
  Sender: PFIZER
  Company Number: CN-PFIZER INC-PV202500120413

PATIENT
  Age: 18 Year
  Sex: Female
  Weight: 46 kg

DRUGS (2)
  1. METHYLPREDNISOLONE [Suspect]
     Active Substance: METHYLPREDNISOLONE
     Indication: Cortisol abnormal
     Dosage: 4 MG, 1X/DAY
     Route: 048
     Dates: start: 20250901, end: 20250917
  2. DROSPIRENONE\ETHINYL ESTRADIOL [Suspect]
     Active Substance: DROSPIRENONE\ETHINYL ESTRADIOL
     Indication: Polycystic ovarian syndrome
     Dosage: 3 MG, 1X/DAY
     Route: 048
     Dates: start: 20250901, end: 20250917

REACTIONS (10)
  - Cerebral venous sinus thrombosis [Unknown]
  - Headache [Unknown]
  - Vision blurred [Unknown]
  - Nausea [Unknown]
  - Dizziness [Unknown]
  - Asthenia [Unknown]
  - Cerebral infarction [Unknown]
  - Transverse sinus thrombosis [Unknown]
  - Sigmoid sinus thrombosis [Unknown]
  - Initial insomnia [Unknown]

NARRATIVE: CASE EVENT DATE: 20250917
